FAERS Safety Report 16229028 (Version 3)
Quarter: 2019Q3

REPORT INFORMATION
  Report Type: Spontaneous
  Country: US (occurrence: US)
  Receive Date: 20190423
  Receipt Date: 20190930
  Transmission Date: 20191004
  Serious: Yes (Other)
  Sender: FDA-Public Use
  Company Number: US-PFIZER INC-2019166771

PATIENT
  Age: 81 Year
  Sex: Male
  Weight: 85 kg

DRUGS (1)
  1. ALDACTONE [Suspect]
     Active Substance: SPIRONOLACTONE
     Indication: HEART TRANSPLANT
     Dosage: 25 MG, 1X/DAY
     Route: 048
     Dates: start: 2002

REACTIONS (3)
  - Product use in unapproved indication [Unknown]
  - Device malfunction [Unknown]
  - Off label use [Unknown]
